FAERS Safety Report 15551275 (Version 1)
Quarter: 2018Q4

REPORT INFORMATION
  Report Type: Report from Study
  Country: US (occurrence: JP)
  Receive Date: 20181025
  Receipt Date: 20181025
  Transmission Date: 20190205
  Serious: Yes (Other)
  Sender: FDA-Public Use
  Company Number: US-TEVA-2018-US-966605

PATIENT
  Age: 22 Month
  Sex: Female

DRUGS (1)
  1. CLARITHROMYCIN. [Suspect]
     Active Substance: CLARITHROMYCIN
     Indication: LYMPHADENITIS
     Dosage: 15 MG/KG DAILY;
     Route: 065

REACTIONS (1)
  - Deafness neurosensory [Unknown]
